FAERS Safety Report 8953120 (Version 1)
Quarter: 2012Q4

REPORT INFORMATION
  Report Type: 
  Country: JP (occurrence: JP)
  Receive Date: 20121206
  Receipt Date: 20121206
  Transmission Date: 20130627
  Serious: Yes (Hospitalization, Other)
  Sender: FDA-Public Use
  Company Number: JP-009507513-1207JPN000023

PATIENT
  Age: 53 Year
  Sex: Female
  Weight: 64 kg

DRUGS (12)
  1. PEGINTRON [Suspect]
     Indication: HEPATITIS C
     Dosage: 1.3 mcg/kg/week
     Route: 058
     Dates: start: 20111221, end: 20120307
  2. REBETOL [Suspect]
     Indication: HEPATITIS C
     Route: 048
     Dates: start: 20111221, end: 20120314
  3. TELAPREVIR [Suspect]
     Indication: HEPATITIS C
     Route: 048
     Dates: start: 20111221, end: 20120313
  4. VOLTAREN [Concomitant]
     Indication: PROPHYLAXIS
     Dosage: As needed
     Route: 054
     Dates: start: 20111221, end: 20120203
  5. PRIMPERAN [Concomitant]
     Indication: PROPHYLAXIS
     Route: 048
     Dates: start: 20111222
  6. RINDERON VG [Concomitant]
     Indication: RASH
     Dosage: As needed
     Route: 061
     Dates: end: 20120314
  7. MEILAX [Concomitant]
     Indication: ANXIETY DISORDER
     Route: 048
  8. JZOLOFT [Concomitant]
     Indication: ANXIETY DISORDER
     Route: 048
  9. MAGLAX (MAGNESIUM SULFATE) [Concomitant]
     Indication: PROPHYLAXIS
     Route: 048
  10. SELBEX [Concomitant]
     Indication: PROPHYLAXIS
     Route: 048
  11. LOXONIN [Concomitant]
     Indication: PROPHYLAXIS
     Dosage: As needed
     Route: 048
  12. BENZALIN [Concomitant]
     Indication: ANXIETY DISORDER
     Route: 048

REACTIONS (2)
  - Erythema multiforme [Recovered/Resolved]
  - Disseminated intravascular coagulation [Not Recovered/Not Resolved]
